FAERS Safety Report 8556796-0 (Version None)
Quarter: 2012Q3

REPORT INFORMATION
  Report Type: 
  Country: None (occurrence: None)
  Receive Date: 20120726
  Receipt Date: 20120726
  Transmission Date: 20120928
  Serious: Yes (Hospitalization)
  Sender: FDA-Public Use
  Company Number: None

PATIENT
  Age: 21 Year
  Sex: Female

DRUGS (1)
  1. SPRINTEC [Suspect]
     Indication: HEADACHE
     Dosage: ONCE DAILY, PO
     Route: 048
     Dates: start: 20120101, end: 20120724

REACTIONS (14)
  - HYPOAESTHESIA [None]
  - VOMITING [None]
  - MIGRAINE [None]
  - MOOD ALTERED [None]
  - COORDINATION ABNORMAL [None]
  - DEPRESSION [None]
  - CONFUSIONAL STATE [None]
  - MENTAL DISORDER [None]
  - DIZZINESS [None]
  - PARAESTHESIA [None]
  - HEADACHE [None]
  - SYNCOPE [None]
  - VISUAL IMPAIRMENT [None]
  - NAUSEA [None]
